FAERS Safety Report 11494427 (Version 2)
Quarter: 2015Q4

REPORT INFORMATION
  Report Type: Report from Study
  Country: BR (occurrence: BR)
  Receive Date: 20150911
  Receipt Date: 20151009
  Transmission Date: 20160304
  Serious: Yes (Other)
  Sender: FDA-Public Use
  Company Number: PHHY2015BR101706

PATIENT
  Sex: Male
  Weight: 78 kg

DRUGS (4)
  1. DIOVAN [Suspect]
     Active Substance: VALSARTAN
     Dosage: 1 DF (320 MG), QD
     Route: 048
     Dates: start: 2012, end: 2015
  2. ATENSINA [Concomitant]
     Active Substance: CLONIDINE
     Indication: HYPERTENSION
     Dosage: 2 DF, QD (STARTED USING 2 YEARS AGO)
     Route: 048
  3. EXFORGE HCT [Suspect]
     Active Substance: AMLODIPINE BESYLATE\HYDROCHLOROTHIAZIDE\VALSARTAN
     Indication: HYPERTENSION
     Dosage: VALSARTAN 320 MG AND AMLODIPINE 25 MG AND HYDROCHLORTHIAZIDE 10 MG, QD (STARTED 2 MONTHS AGO)
     Route: 048
  4. DIOVAN [Suspect]
     Active Substance: VALSARTAN
     Indication: HYPERTENSION
     Dosage: 2 DF (160 MG), QD
     Route: 048
     Dates: start: 2007, end: 2012

REACTIONS (4)
  - Blood pressure increased [Recovered/Resolved]
  - Blood pressure increased [Not Recovered/Not Resolved]
  - Arterial occlusive disease [Recovered/Resolved]
  - Drug ineffective [Unknown]
